FAERS Safety Report 5840230-5 (Version None)
Quarter: 2008Q3

REPORT INFORMATION
  Report Type: 
  Country: None (occurrence: None)
  Receive Date: 20080807
  Receipt Date: 20080807
  Transmission Date: 20090109
  Serious: No
  Sender: FDA-Public Use
  Company Number: None

PATIENT
  Sex: Male
  Weight: 80 kg

DRUGS (3)
  1. CISPLATIN [Suspect]
     Dosage: 44 MG
  2. ERBITUX [Suspect]
     Dosage: 1492 MG
  3. CAMPTOSAR [Suspect]
     Dosage: 192 MG

REACTIONS (1)
  - NEUTROPHIL COUNT ABNORMAL [None]
